FAERS Safety Report 24139814 (Version 1)
Quarter: 2024Q3

REPORT INFORMATION
  Report Type: Spontaneous
  Country: JP (occurrence: JP)
  Receive Date: 20240726
  Receipt Date: 20240726
  Transmission Date: 20241016
  Serious: Yes (Other)
  Sender: GILEAD
  Company Number: JP-GILEAD-2024-0681691

PATIENT
  Age: 3 Decade
  Sex: Male

DRUGS (2)
  1. BIKTARVY [Suspect]
     Active Substance: BICTEGRAVIR SODIUM\EMTRICITABINE\TENOFOVIR ALAFENAMIDE FUMARATE
     Indication: Acquired immunodeficiency syndrome
     Dosage: UNK
     Route: 065
  2. GANCICLOVIR [Concomitant]
     Active Substance: GANCICLOVIR
     Dosage: UNK

REACTIONS (2)
  - Biliary tract infection cryptosporidial [Recovering/Resolving]
  - Cholangitis [Recovering/Resolving]
